FAERS Safety Report 17943075 (Version 2)
Quarter: 2020Q2

REPORT INFORMATION
  Report Type: Report from Study
  Country: GR (occurrence: GR)
  Receive Date: 20200625
  Receipt Date: 20200630
  Transmission Date: 20200714
  Serious: Yes (Other)
  Sender: FDA-Public Use
  Company Number: GR-SA-2020SA155572

PATIENT

DRUGS (10)
  1. DIPHENHYDRAMINE. [Suspect]
     Active Substance: DIPHENHYDRAMINE
     Indication: PROPHYLAXIS
     Dosage: 50 MG
     Route: 048
  2. FOLINIC ACID [Suspect]
     Active Substance: LEUCOVORIN
     Indication: GERM CELL CANCER
     Dosage: 15 MG AT 24, 36, 48, AND 60 HOURS
     Route: 065
  3. RANITIDINE. [Suspect]
     Active Substance: RANITIDINE
     Indication: PROPHYLAXIS
     Dosage: 50 MG, SOLUTION FOR INFUSION
     Route: 042
  4. CISPLATIN. [Suspect]
     Active Substance: CISPLATIN
     Indication: GERM CELL CANCER
     Dosage: 20 MG/M2, SOLUTION FOR INFUSION, 2-HOUR INFUSION ON DAYS 2 TO 6
     Route: 041
  5. METHOTREXATE. [Suspect]
     Active Substance: METHOTREXATE
     Indication: GERM CELL CANCER
     Dosage: 250 MG/M2, AS A 4-HOUR SOLUTION FOR INFUSION
     Route: 041
  6. DEXAMETHASONE SALT NOT SPECIFIED [Suspect]
     Active Substance: DEXAMETHASONE
     Indication: PROPHYLAXIS
     Dosage: 20 MG
  7. IFOSFAMIDE. [Suspect]
     Active Substance: IFOSFAMIDE
     Indication: GERM CELL CANCER
     Dosage: 1200 MG/M2, SOLUTION FOR INFUSION, 2-HOUR INFUSION
     Route: 041
  8. MESNA. [Suspect]
     Active Substance: MESNA
     Indication: GERM CELL CANCER
     Dosage: 400 MG/M2
     Route: 042
  9. GRANULOCYTE COLONY STIMULATING FACTOR [Suspect]
     Active Substance: GRANULOCYTE COLONY-STIMULATING FACTOR NOS
     Indication: PROPHYLAXIS
     Dosage: UNK, QD
     Route: 058
  10. PACLITAXEL. [Suspect]
     Active Substance: PACLITAXEL
     Indication: GERM CELL CANCER
     Dosage: 175 MG/M2 GIVEN AS A 3-HOUR INFUSION ON DAY 1
     Route: 041

REACTIONS (2)
  - Ototoxicity [Unknown]
  - Off label use [Unknown]
